FAERS Safety Report 7654258-6 (Version None)
Quarter: 2011Q3

REPORT INFORMATION
  Report Type: 
  Country: None (occurrence: None)
  Receive Date: 20110803
  Receipt Date: 20110723
  Transmission Date: 20111222
  Serious: Yes (Hospitalization)
  Sender: FDA-Public Use
  Company Number: US-SANOFI-AVENTIS-2011SA048545

PATIENT
  Sex: Female

DRUGS (5)
  1. GLUCOPHAGE [Suspect]
  2. PREDNISONE [Concomitant]
  3. LANTUS [Suspect]
     Indication: DIABETES MELLITUS
     Route: 058
  4. COUMADIN [Concomitant]
  5. ACTOS [Concomitant]

REACTIONS (2)
  - RENAL FAILURE [None]
  - PULMONARY HAEMORRHAGE [None]
